FAERS Safety Report 5343986-3 (Version None)
Quarter: 2007Q2

REPORT INFORMATION
  Report Type: 
  Country: None (occurrence: None)
  Receive Date: 20070604
  Receipt Date: 20070524
  Transmission Date: 20071010
  Serious: Yes (Other)
  Sender: FDA-Public Use
  Company Number: JP-AVENTIS-200711337JP

PATIENT
  Age: 92 Year
  Sex: Female

DRUGS (1)
  1. LASIX [Suspect]
     Indication: CARDIAC FAILURE
     Dates: start: 20000101, end: 20070301

REACTIONS (1)
  - PEMPHIGOID [None]
